FAERS Safety Report 18605078 (Version 3)
Quarter: 2022Q3

REPORT INFORMATION
  Report Type: Spontaneous
  Country: JP (occurrence: JP)
  Receive Date: 20201211
  Receipt Date: 20220713
  Transmission Date: 20221027
  Serious: Yes (Hospitalization)
  Sender: FDA-Public Use
  Company Number: JP-GSKNCCC-CASE-01100979_AE-37913

PATIENT

DRUGS (2)
  1. DUTASTERIDE [Interacting]
     Active Substance: DUTASTERIDE
     Indication: Benign prostatic hyperplasia
     Dosage: 0.5 MG, QD
     Route: 048
     Dates: start: 20200316
  2. CHLORMADINONE [Interacting]
     Active Substance: CHLORMADINONE
     Indication: Benign prostatic hyperplasia
     Dosage: UNK

REACTIONS (2)
  - Dyspnoea [Unknown]
  - Drug interaction [Unknown]
